FAERS Safety Report 5347074-1 (Version None)
Quarter: 2007Q2

REPORT INFORMATION
  Report Type: 
  Country: None (occurrence: None)
  Receive Date: 20070604
  Receipt Date: 20070529
  Transmission Date: 20071010
  Serious: Yes (Hospitalization)
  Sender: FDA-Public Use
  Company Number: 2007PL000008

PATIENT
  Sex: Male

DRUGS (1)
  1. IMURAN [Suspect]
     Indication: POLYCHONDRITIS
     Dosage: PO
     Route: 048
     Dates: start: 20060101, end: 20060101

REACTIONS (10)
  - ARTHRALGIA [None]
  - ASTHENIA [None]
  - CHILLS [None]
  - DISORIENTATION [None]
  - DIZZINESS [None]
  - FATIGUE [None]
  - HEADACHE [None]
  - MYALGIA [None]
  - PYREXIA [None]
  - SPEECH DISORDER [None]
